FAERS Safety Report 11039371 (Version 1)
Quarter: 2015Q2

REPORT INFORMATION
  Report Type: Spontaneous
  Country: US (occurrence: US)
  Receive Date: 20150416
  Receipt Date: 20150416
  Transmission Date: 20150821
  Serious: No
  Sender: FDA-Public Use
  Company Number: US-MYLANLABS-2015M1005430

PATIENT
  Sex: Female

DRUGS (1)
  1. ESTRADIOL. [Suspect]
     Active Substance: ESTRADIOL
     Dosage: TWICE WEEKLY

REACTIONS (2)
  - Metrorrhagia [Not Recovered/Not Resolved]
  - Drug dispensing error [Not Recovered/Not Resolved]
